FAERS Safety Report 6937560-2 (Version None)
Quarter: 2010Q3

REPORT INFORMATION
  Report Type: 
  Country: None (occurrence: None)
  Receive Date: 20100823
  Receipt Date: 20100823
  Transmission Date: 20110219
  Serious: Yes (Death)
  Sender: FDA-Public Use
  Company Number: None

PATIENT
  Age: 31 Year
  Sex: Female
  Weight: 97.0698 kg

DRUGS (2)
  1. PHENERGAN [Suspect]
     Indication: NAUSEA
     Dosage: RECTAL
     Route: 054
     Dates: start: 20100330, end: 20100331
  2. PHENERGAN [Suspect]
     Indication: VOMITING
     Dosage: RECTAL
     Route: 054
     Dates: start: 20100330, end: 20100331

REACTIONS (4)
  - ACCIDENTAL OVERDOSE [None]
  - HEPATOMEGALY [None]
  - MEDICATION ERROR [None]
  - PULMONARY OEDEMA [None]
